FAERS Safety Report 4271965-6 (Version None)
Quarter: 2004Q1

REPORT INFORMATION
  Report Type: 
  Country: None (occurrence: None)
  Receive Date: 20040115
  Receipt Date: 20020118
  Transmission Date: 20041129
  Serious: Yes (Hospitalization, Other)
  Sender: FDA-Public Use
  Company Number: US-BRISTOL-MYERS SQUIBB COMPANY-11675345

PATIENT
  Age: 66 Year
  Sex: Male

DRUGS (7)
  1. PRAVASTATIN SODIUM [Suspect]
     Dosage: MOST RECENT DOSE PRIOR TO EVENT WAS 27-DEC-2001
     Route: 048
     Dates: start: 20010418
  2. GATIFLOXACIN [Suspect]
     Dosage: MOST RECENT DOSE PRIOR TO EVENT WAS 27-DEC-2001
     Route: 048
     Dates: start: 20010505
  3. ATENOLOL [Suspect]
     Route: 048
     Dates: start: 20000401
  4. ACTOS [Concomitant]
     Route: 048
     Dates: start: 20010423
  5. ASPIRIN [Concomitant]
     Route: 048
     Dates: start: 20000101
  6. GLYBURIDE [Concomitant]
     Route: 048
     Dates: start: 20000101
  7. IMDUR [Concomitant]
     Route: 048
     Dates: start: 20000101

REACTIONS (3)
  - BLOOD CREATINE PHOSPHOKINASE MB INCREASED [None]
  - HYPOTENSION [None]
  - PULMONARY OEDEMA [None]
